FAERS Safety Report 8763060 (Version 1)
Quarter: 2012Q4

REPORT INFORMATION
  Report Type: Spontaneous
  Country: US (occurrence: None)
  Receive Date: 20120830
  Receipt Date: 20120830
  Transmission Date: 20130627
  Serious: Yes (Other)
  Sender: FDA-Public Use
  Company Number: None

PATIENT
  Age: 32 Year
  Sex: Female
  Weight: 86.18 kg

DRUGS (1)
  1. M AMPHET [Suspect]
     Indication: ADD
     Route: 048
     Dates: start: 20070219, end: 20120829

REACTIONS (6)
  - Product substitution issue [None]
  - Job dissatisfaction [None]
  - Drug ineffective [None]
  - Disturbance in attention [None]
  - Somnolence [None]
  - Impaired driving ability [None]
